FAERS Safety Report 4510946-1 (Version None)
Quarter: 2004Q4

REPORT INFORMATION
  Report Type: 
  Country: None (occurrence: None)
  Receive Date: 20040928
  Receipt Date: 20040610
  Transmission Date: 20050328
  Serious: No
  Sender: FDA-Public Use
  Company Number: 04P-163-0263484-00

PATIENT
  Age: 71 Year
  Sex: Female

DRUGS (14)
  1. HUMIRA [Suspect]
     Indication: RHEUMATOID ARTHRITIS
     Dosage: 40 MG, 1 IN 2 WK, SUBCUTANEOUS
     Route: 058
     Dates: start: 20030701, end: 20031215
  2. HUMIRA [Suspect]
     Indication: RHEUMATOID ARTHRITIS
     Dosage: 40 MG, 1 IN 2 WK, SUBCUTANEOUS
     Route: 058
     Dates: start: 20031225, end: 20040401
  3. ATENOLOL [Concomitant]
  4. PANTOPRAZOLE [Concomitant]
  5. IRON [Concomitant]
  6. GEMFIBROZIL [Concomitant]
  7. SUCRALFATE [Concomitant]
  8. ATORVASTATIN CALCIUM [Concomitant]
  9. MULTI-VITAMINS [Concomitant]
  10. CLONAZEPAM [Concomitant]
  11. CITALOPRAM HYDROBROMIDE [Concomitant]
  12. TOLTERODINE TARTRATE [Concomitant]
  13. DONEPEZIL HCL [Concomitant]
  14. VICODIN [Concomitant]

REACTIONS (1)
  - SINUSITIS [None]
